FAERS Safety Report 4943426-X (Version None)
Quarter: 2006Q1

REPORT INFORMATION
  Report Type: 
  Country: None (occurrence: None)
  Receive Date: 20060309
  Receipt Date: 20060301
  Transmission Date: 20060701
  Serious: Yes (Hospitalization)
  Sender: FDA-Public Use
  Company Number: 231173K06USA

PATIENT
  Age: 37 Year
  Sex: Female

DRUGS (1)
  1. REBIF [Suspect]
     Indication: MULTIPLE SCLEROSIS
     Dosage: 44 MCG, 3 IN 1 WEEKS, SUBCUTANEOUS
     Route: 058
     Dates: start: 20030417

REACTIONS (9)
  - BACK DISORDER [None]
  - DRY SKIN [None]
  - FEELING HOT [None]
  - INJECTION SITE DISCOMFORT [None]
  - INJECTION SITE INFECTION [None]
  - PAIN IN EXTREMITY [None]
  - SKIN EXFOLIATION [None]
  - SURGERY [None]
  - UPPER RESPIRATORY TRACT INFECTION [None]
